FAERS Safety Report 8032855 (Version 3)
Quarter: 2014Q1

REPORT INFORMATION
  Report Type: Spontaneous
  Country: US (occurrence: US)
  Receive Date: 20110713
  Receipt Date: 20140113
  Transmission Date: 20141002
  Serious: Yes (Hospitalization, Other)
  Sender: FDA-Public Use
  Company Number: US-BAYER-2011-060325

PATIENT
  Age: 19 Year
  Sex: Female

DRUGS (1)
  1. YAZ [Suspect]
     Dosage: UNK
     Dates: start: 200810, end: 200908

REACTIONS (6)
  - Cholecystectomy [Unknown]
  - Cholecystitis chronic [None]
  - Gastritis [None]
  - Abdominal pain [None]
  - Injury [None]
  - Emotional distress [None]
